FAERS Safety Report 15976242 (Version 1)
Quarter: 2019Q1

REPORT INFORMATION
  Report Type: Spontaneous
  Country: US (occurrence: US)
  Receive Date: 20190218
  Receipt Date: 20190218
  Transmission Date: 20190418
  Serious: No
  Sender: FDA-Public Use
  Company Number: US-PFIZER INC-2019064098

PATIENT
  Age: 54 Year
  Sex: Female
  Weight: 73.3 kg

DRUGS (1)
  1. GABAPENTIN. [Suspect]
     Active Substance: GABAPENTIN
     Dosage: 3600 MG, DAILY

REACTIONS (2)
  - Drug ineffective [Unknown]
  - Drug tolerance [Unknown]
